FAERS Safety Report 21930424 (Version 1)
Quarter: 2023Q1

REPORT INFORMATION
  Report Type: Spontaneous
  Country: US (occurrence: None)
  Receive Date: 20230130
  Receipt Date: 20230130
  Transmission Date: 20230417
  Serious: Yes (Hospitalization)
  Sender: FDA-Public Use
  Company Number: None

PATIENT
  Sex: Female

DRUGS (1)
  1. STIVARGA [Suspect]
     Active Substance: REGORAFENIB
     Indication: Gallbladder cancer
     Dosage: 160MG DAILY 21 ON/7OFF BY MOUTH?
     Route: 048
     Dates: start: 202212

REACTIONS (2)
  - Malaise [None]
  - Fatigue [None]
